FAERS Safety Report 7088180-3 (Version None)
Quarter: 2010Q4

REPORT INFORMATION
  Report Type: 
  Country: None (occurrence: None)
  Receive Date: 20101028
  Receipt Date: 20101018
  Transmission Date: 20110411
  Serious: Yes (Hospitalization)
  Sender: FDA-Public Use
  Company Number: UTC-001666

PATIENT
  Age: 63 Year
  Sex: Female
  Weight: 82.6 kg

DRUGS (14)
  1. TYVASO [Suspect]
     Indication: COR PULMONALE CHRONIC
     Dosage: 216 MCG (54 MCG, 4 IN 1 D), INHALATION
     Route: 055
     Dates: start: 20100617
  2. ASPIRIN [Concomitant]
  3. PLAVIX [Concomitant]
  4. COUMADIN [Concomitant]
  5. PREDNISONE [Concomitant]
  6. ALLOPURINOL [Concomitant]
  7. FUROSEMIDE [Concomitant]
  8. SPIRONOLACTONE [Concomitant]
  9. DIOVAN [Concomitant]
  10. CARVEDILOL [Concomitant]
  11. TRACLEER [Concomitant]
  12. NEXIUM [Concomitant]
  13. POTASSIUM CHLORIDE [Concomitant]
  14. TYVASO [Suspect]

REACTIONS (6)
  - ASTHENIA [None]
  - CHEST PAIN [None]
  - DYSPNOEA [None]
  - GASTROINTESTINAL HAEMORRHAGE [None]
  - HAEMOGLOBIN DECREASED [None]
  - OEDEMA [None]
